FAERS Safety Report 15005173 (Version 2)
Quarter: 2018Q4

REPORT INFORMATION
  Report Type: Spontaneous
  Country: US (occurrence: US)
  Receive Date: 20180613
  Receipt Date: 20181220
  Transmission Date: 20190204
  Serious: No
  Sender: FDA-Public Use
  Company Number: US-PFIZER INC-2018240095

PATIENT
  Age: 76 Year
  Sex: Female

DRUGS (2)
  1. XELJANZ [Suspect]
     Active Substance: TOFACITINIB CITRATE
     Indication: RHEUMATOID ARTHRITIS
     Dosage: 5 MG, TWICE DAILY
     Route: 048
  2. XELJANZ [Suspect]
     Active Substance: TOFACITINIB CITRATE
     Dosage: 5 MG, DAILY
     Route: 048

REACTIONS (6)
  - Tuberculin test positive [Unknown]
  - Product use issue [Unknown]
  - Arthropathy [Unknown]
  - Limb discomfort [Unknown]
  - Gait inability [Unknown]
  - Musculoskeletal discomfort [Unknown]
